FAERS Safety Report 13917346 (Version 1)
Quarter: 2017Q3

REPORT INFORMATION
  Report Type: Spontaneous
  Country: US (occurrence: US)
  Receive Date: 20170829
  Receipt Date: 20170829
  Transmission Date: 20171127
  Serious: No
  Sender: FDA-Public Use
  Company Number: US-GLAXOSMITHKLINE-US2017131642

PATIENT
  Age: 80 Year
  Sex: Female

DRUGS (1)
  1. ABREVA [Suspect]
     Active Substance: DOCOSANOL
     Indication: ORAL HERPES
     Dosage: UNK, ONLY APPLIED IT ONCE YESTERDAY
     Dates: start: 20170820

REACTIONS (1)
  - Inappropriate schedule of drug administration [Unknown]
